FAERS Safety Report 5442888-1 (Version None)
Quarter: 2007Q3

REPORT INFORMATION
  Report Type: 
  Country: None (occurrence: None)
  Receive Date: 20070831
  Receipt Date: 20070831
  Transmission Date: 20080115
  Serious: Yes (Hospitalization)
  Sender: FDA-Public Use
  Company Number: None

PATIENT
  Sex: Female

DRUGS (1)
  1. VENOFER [Suspect]
     Indication: IRON DEFICIENCY
     Dosage: 500MG EVERY 14DAYS IV
     Route: 042
     Dates: start: 20070727

REACTIONS (3)
  - ERYTHEMA [None]
  - MUSCLE SPASMS [None]
  - PAIN [None]
